FAERS Safety Report 4690125-8 (Version None)
Quarter: 2005Q2

REPORT INFORMATION
  Report Type: 
  Country: None (occurrence: None)
  Receive Date: 20050613
  Receipt Date: 20050531
  Transmission Date: 20051028
  Serious: Yes (Death, Other)
  Sender: FDA-Public Use
  Company Number: GB-SHR-03-003016

PATIENT
  Age: 50 Year
  Sex: Male
  Weight: 69 kg

DRUGS (11)
  1. FLUDARABINE PHOSPHATE [Suspect]
     Indication: ACUTE MYELOID LEUKAEMIA
     Dosage: SEE IMAGE
     Route: 042
     Dates: start: 20021005, end: 20021009
  2. FLUDARABINE PHOSPHATE [Suspect]
     Indication: ACUTE MYELOID LEUKAEMIA
     Dosage: SEE IMAGE
     Route: 042
     Dates: start: 20021227, end: 20021231
  3. CYTARABINE [Suspect]
     Indication: ACUTE LEUKAEMIA
     Dosage: 2600 MG/D, 1X/DAY, INTRAVENOUS
     Route: 042
     Dates: start: 20021227, end: 20021231
  4. VORICONAZOLE (VORICONAZOLE) [Suspect]
     Indication: LOWER RESPIRATORY TRACT INFECTION
     Dosage: 400 MG, 2X/DAY, ORAL
     Route: 048
     Dates: start: 20021227, end: 20021231
  5. AMBISOME [Suspect]
     Indication: INFECTION
     Dosage: 250 MG, 1X/DAY, INTRAVENOUS
     Route: 042
     Dates: start: 20030101, end: 20030117
  6. ACYCLOVIR [Concomitant]
  7. COTRIM [Concomitant]
  8. RIBAVIRIN [Concomitant]
  9. CIPROFLOXACIN [Concomitant]
  10. TEICOPLANIN (TEICOPLANIN) [Concomitant]
  11. OMEPRAZOLE [Concomitant]

REACTIONS (12)
  - ACUTE MYELOID LEUKAEMIA [None]
  - AREFLEXIA [None]
  - ASTHENIA [None]
  - CARDIAC TAMPONADE [None]
  - ENDOCARDITIS [None]
  - INFECTION [None]
  - LOWER RESPIRATORY TRACT INFECTION [None]
  - NEUROPATHY PERIPHERAL [None]
  - PARAINFLUENZAE VIRUS INFECTION [None]
  - PERICARDIAL EFFUSION [None]
  - PERICARDIAL HAEMORRHAGE [None]
  - PYREXIA [None]
